FAERS Safety Report 21459128 (Version 1)
Quarter: 2022Q4

REPORT INFORMATION
  Report Type: Spontaneous
  Country: US (occurrence: None)
  Receive Date: 20221014
  Receipt Date: 20221014
  Transmission Date: 20230113
  Serious: Yes (Death)
  Sender: FDA-Public Use
  Company Number: 2022A346848

PATIENT
  Sex: Male

DRUGS (1)
  1. EVUSHELD [Suspect]
     Active Substance: CILGAVIMAB\TIXAGEVIMAB
     Dosage: DOSE UNKNOWN UNKNOWN
     Route: 030

REACTIONS (1)
  - Death [Fatal]
